FAERS Safety Report 10329404 (Version 1)
Quarter: 2014Q3

REPORT INFORMATION
  Report Type: Spontaneous
  Country: CN (occurrence: None)
  Receive Date: 20140717
  Receipt Date: 20140717
  Transmission Date: 20150326
  Serious: Yes (Life-Threatening)
  Sender: FDA-Public Use
  Company Number: 2435951

PATIENT
  Age: 56 Year
  Sex: Female

DRUGS (4)
  1. IRINOTECAN [Suspect]
     Active Substance: IRINOTECAN
     Indication: RECTAL CANCER STAGE IV
     Dosage: 270 MG MILLIGRAM(S), CYCLICAL, INTRAVENOUS DRIP
     Route: 041
  2. CALCIUM FOLINATE [Suspect]
     Active Substance: LEUCOVORIN CALCIUM
     Indication: RECTAL CANCER STAGE IV
     Dosage: 030, CYCLICAL, INTRAVENOUS DRIP
     Route: 041
  3. BEVACIZUMAB [Suspect]
     Active Substance: BEVACIZUMAB
     Indication: RECTAL CANCER STAGE IV
     Dosage: 300 MG MILLIGRAM(S),CYCLICAL, INTRAVENOUS DRIP?
     Route: 041
  4. 5-FU /00098801/ [Suspect]
     Active Substance: FLUOROURACIL
     Indication: RECTAL CANCER STAGE IV
     Dosage: .6 MG MILLIGRAM(S), CYCLICAL, INTRAVENOUS BOLUS?
     Route: 040

REACTIONS (3)
  - Posterior reversible encephalopathy syndrome [None]
  - Coma [None]
  - Convulsion [None]

NARRATIVE: CASE EVENT DATE: 20110411
